FAERS Safety Report 9225375 (Version 1)
Quarter: 2013Q2

REPORT INFORMATION
  Report Type: Report from Study
  Country: FR (occurrence: FR)
  Receive Date: 20130411
  Receipt Date: 20130411
  Transmission Date: 20140414
  Serious: Yes (Hospitalization)
  Sender: FDA-Public Use
  Company Number: FR-ROCHE-1210487

PATIENT
  Age: 55 Year
  Sex: Male
  Weight: 70 kg

DRUGS (6)
  1. TENECTEPLASE [Suspect]
     Indication: MYOCARDIAL INFARCTION
     Route: 065
     Dates: start: 20041129, end: 20041129
  2. HEPARIN [Suspect]
     Indication: MYOCARDIAL INFARCTION
     Dosage: 5500 U
     Route: 040
     Dates: start: 20041129, end: 20041129
  3. PLAVIX [Suspect]
     Indication: MYOCARDIAL INFARCTION
     Route: 048
     Dates: start: 20041129
  4. SOPROL [Concomitant]
     Indication: MYOCARDIAL INFARCTION
     Route: 065
     Dates: start: 20041129
  5. KARDEGIC [Concomitant]
     Indication: MYOCARDIAL INFARCTION
     Route: 048
  6. TRIATEC [Concomitant]
     Indication: MYOCARDIAL INFARCTION
     Route: 048
     Dates: start: 20041129

REACTIONS (1)
  - Thrombocytopenia [Recovered/Resolved]
